FAERS Safety Report 8450078-3 (Version None)
Quarter: 2012Q2

REPORT INFORMATION
  Report Type: 
  Country: None (occurrence: None)
  Receive Date: 20120620
  Receipt Date: 20120611
  Transmission Date: 20120825
  Serious: Yes (Other)
  Sender: FDA-Public Use
  Company Number: US-JNJFOC-20120507378

PATIENT
  Age: 56 Year
  Sex: Male
  Weight: 105 kg

DRUGS (2)
  1. EVITHROM [Suspect]
     Indication: HAEMOSTASIS
     Route: 061
     Dates: start: 20120309, end: 20120309
  2. LOCAL HAEMOSTATICS [Suspect]
     Indication: HAEMOSTASIS
     Route: 061
     Dates: start: 20120309, end: 20120309

REACTIONS (4)
  - WOUND DEHISCENCE [None]
  - WOUND SECRETION [None]
  - IMPAIRED HEALING [None]
  - SKIN INDURATION [None]
